FAERS Safety Report 15955068 (Version 1)
Quarter: 2019Q1

REPORT INFORMATION
  Report Type: Spontaneous
  Country: US (occurrence: US)
  Receive Date: 20190213
  Receipt Date: 20190213
  Transmission Date: 20190417
  Serious: No
  Sender: FDA-Public Use
  Company Number: US-PFIZER INC-2019065020

PATIENT
  Age: 39 Year
  Sex: Female
  Weight: 123.8 kg

DRUGS (1)
  1. IBRANCE [Suspect]
     Active Substance: PALBOCICLIB
     Indication: ANAPLASTIC OLIGODENDROGLIOMA
     Dosage: 125 MG, CYCLIC (D1-2L Q 28 DAYS)
     Route: 048
     Dates: start: 20190121

REACTIONS (2)
  - Product use in unapproved indication [Unknown]
  - Nasopharyngitis [Not Recovered/Not Resolved]

NARRATIVE: CASE EVENT DATE: 20190121
